FAERS Safety Report 8471692-5 (Version None)
Quarter: 2012Q2

REPORT INFORMATION
  Report Type: 
  Country: None (occurrence: None)
  Receive Date: 20120627
  Receipt Date: 20120620
  Transmission Date: 20120825
  Serious: Yes (Hospitalization)
  Sender: FDA-Public Use
  Company Number: US-GLAXOSMITHKLINE-A0981836A

PATIENT
  Age: 83 Year
  Sex: Male

DRUGS (11)
  1. AMLODIPINE [Concomitant]
  2. ADVAIR DISKUS 100/50 [Suspect]
     Indication: CHRONIC OBSTRUCTIVE PULMONARY DISEASE
     Dosage: 1PUFF TWICE PER DAY
     Route: 055
     Dates: start: 20090101
  3. CRESTOR [Concomitant]
  4. TERAZOSIN HCL [Concomitant]
  5. SPIRIVA [Concomitant]
  6. METOPROLOL TARTRATE [Concomitant]
  7. BUSPIRONE HCL [Concomitant]
  8. PRADAXA [Concomitant]
  9. XOPENEX [Concomitant]
  10. PROTONIX [Concomitant]
  11. FERROUS SULFATE TAB [Concomitant]

REACTIONS (5)
  - WHEEZING [None]
  - LUNG INFECTION [None]
  - DRUG INEFFECTIVE [None]
  - BACTERAEMIA [None]
  - PNEUMONIA [None]
